FAERS Safety Report 13335540 (Version 1)
Quarter: 2017Q1

REPORT INFORMATION
  Report Type: Spontaneous
  Country: CA (occurrence: CA)
  Receive Date: 20170315
  Receipt Date: 20170315
  Transmission Date: 20170428
  Serious: Yes (Death)
  Sender: FDA-Public Use
  Company Number: CA-TEVA-748349ACC

PATIENT
  Sex: Female

DRUGS (2)
  1. MORPHINE SR [Suspect]
     Active Substance: MORPHINE
     Indication: WOUND
  2. MORPHINE SR [Suspect]
     Active Substance: MORPHINE
     Indication: PAIN IN EXTREMITY

REACTIONS (2)
  - Unresponsive to stimuli [Fatal]
  - Brain injury [Fatal]
